FAERS Safety Report 7471667-9 (Version None)
Quarter: 2011Q1

REPORT INFORMATION
  Report Type: 
  Country: None (occurrence: None)
  Receive Date: 20110302
  Receipt Date: 20101014
  Transmission Date: 20110831
  Serious: Yes (Death, Other)
  Sender: FDA-Public Use
  Company Number: 163-21880-10080150

PATIENT
  Age: 64 Year
  Sex: Male

DRUGS (3)
  1. VELCADE [Concomitant]
  2. REVLIMID [Suspect]
     Indication: AMYLOIDOSIS
     Dosage: 10 MG, 1 IN 1 D, PO
     Route: 048
     Dates: start: 20100621, end: 20100701
  3. DEXAMETHASONE [Concomitant]

REACTIONS (3)
  - CARDIAC AMYLOIDOSIS [None]
  - ARRHYTHMIA [None]
  - DISEASE PROGRESSION [None]
